FAERS Safety Report 7574519-9 (Version None)
Quarter: 2011Q2

REPORT INFORMATION
  Report Type: 
  Country: None (occurrence: None)
  Receive Date: 20110627
  Receipt Date: 20110616
  Transmission Date: 20111010
  Serious: Yes (Other)
  Sender: FDA-Public Use
  Company Number: DE-BAXTER-2011BH018819

PATIENT
  Age: 60 Year
  Sex: Female
  Weight: 81 kg

DRUGS (8)
  1. EXTRANEAL [Suspect]
     Indication: CONGENITAL CYSTIC KIDNEY DISEASE
     Route: 033
     Dates: start: 20110519, end: 20110612
  2. EXTRANEAL [Suspect]
     Route: 033
     Dates: start: 20110516, end: 20110519
  3. EXTRANEAL [Suspect]
     Route: 033
     Dates: start: 20110512, end: 20110516
  4. PHENPROCOUMON [Concomitant]
     Indication: PRODUCT USED FOR UNKNOWN INDICATION
     Route: 065
  5. ASPIRIN [Concomitant]
     Indication: PRODUCT USED FOR UNKNOWN INDICATION
     Route: 065
  6. EXTRANEAL [Suspect]
     Indication: PERITONEAL DIALYSIS
     Route: 033
     Dates: start: 20110519, end: 20110612
  7. EXTRANEAL [Suspect]
     Route: 033
     Dates: start: 20110512, end: 20110516
  8. EXTRANEAL [Suspect]
     Route: 033
     Dates: start: 20110516, end: 20110519

REACTIONS (3)
  - PERITONITIS [None]
  - BLOODY PERITONEAL EFFLUENT [None]
  - PRURITUS GENERALISED [None]
